FAERS Safety Report 7810794-0 (Version None)
Quarter: 2011Q4

REPORT INFORMATION
  Report Type: 
  Country: None (occurrence: None)
  Receive Date: 20111011
  Receipt Date: 20110927
  Transmission Date: 20120403
  Serious: Yes (Hospitalization)
  Sender: FDA-Public Use
  Company Number: 1000024442

PATIENT
  Age: 86 Year
  Sex: Female

DRUGS (1)
  1. MEMANTINE [Suspect]
     Dosage: 5 MG, ORAL
     Route: 048
     Dates: start: 20110907, end: 20110908

REACTIONS (5)
  - HEPATIC FUNCTION ABNORMAL [None]
  - C-REACTIVE PROTEIN INCREASED [None]
  - ALANINE AMINOTRANSFERASE INCREASED [None]
  - SOMNOLENCE [None]
  - ASPARTATE AMINOTRANSFERASE INCREASED [None]
